FAERS Safety Report 4921392-0 (Version None)
Quarter: 2006Q1

REPORT INFORMATION
  Report Type: 
  Country: None (occurrence: None)
  Receive Date: 20060224
  Receipt Date: 20060216
  Transmission Date: 20060701
  Serious: Yes (Hospitalization)
  Sender: FDA-Public Use
  Company Number: 2006CG00345

PATIENT
  Age: 28 Year
  Sex: Male

DRUGS (7)
  1. OMEPRAZOLE [Suspect]
     Route: 048
     Dates: start: 20060207, end: 20060207
  2. TRANXENE [Suspect]
     Dates: start: 20060205, end: 20060207
  3. ROCEPHIN [Suspect]
     Dates: start: 20060203, end: 20060207
  4. OFLOCET [Suspect]
     Dates: start: 20060203, end: 20060207
  5. GLEEVEC [Suspect]
     Route: 042
     Dates: start: 20060201, end: 20060207
  6. VFEND [Suspect]
     Dates: start: 20060203, end: 20060207
  7. SPECIAFOLDINE [Concomitant]

REACTIONS (1)
  - HEPATITIS [None]
